FAERS Safety Report 19799444 (Version 2)
Quarter: 2021Q4

REPORT INFORMATION
  Report Type: Other
  Country: CL (occurrence: None)
  Receive Date: 20210907
  Receipt Date: 20211229
  Transmission Date: 20220303
  Serious: No
  Sender: FDA-Public Use
  Company Number: CL-ROCHE-2771516

PATIENT
  Age: 76 Year
  Sex: Female

DRUGS (6)
  1. HERCEPTIN [Suspect]
     Active Substance: TRASTUZUMAB
     Indication: Breast cancer
     Route: 058
     Dates: start: 202004
  2. KADCYLA [Suspect]
     Active Substance: ADO-TRASTUZUMAB EMTANSINE
     Indication: Breast cancer
     Route: 042
     Dates: start: 20210812
  3. DEXAMETHASONE [Concomitant]
     Active Substance: DEXAMETHASONE
  4. ONDANSETRON [Concomitant]
     Active Substance: ONDANSETRON
  5. CHLORPHENIRAMINE MALEATE [Concomitant]
     Active Substance: CHLORPHENIRAMINE MALEATE
  6. RANITIDINE [Concomitant]
     Active Substance: RANITIDINE

REACTIONS (16)
  - Onychoclasis [Unknown]
  - Nail discolouration [Unknown]
  - Infection [Unknown]
  - Nail infection [Not Recovered/Not Resolved]
  - Pulmonary mass [Unknown]
  - Onychomadesis [Not Recovered/Not Resolved]
  - Hyperaesthesia [Unknown]
  - Nail growth abnormal [Unknown]
  - Nausea [Unknown]
  - Vomiting [Recovered/Resolved]
  - Mucosal inflammation [Unknown]
  - COVID-19 [Unknown]
  - Post-acute COVID-19 syndrome [Unknown]
  - Headache [Recovered/Resolved]
  - Nail disorder [Unknown]
  - Onychomadesis [Unknown]

NARRATIVE: CASE EVENT DATE: 20201112
